FAERS Safety Report 25680156 (Version 1)
Quarter: 2025Q3

REPORT INFORMATION
  Report Type: Spontaneous
  Country: US (occurrence: US)
  Receive Date: 20250814
  Receipt Date: 20250814
  Transmission Date: 20251020
  Serious: No
  Sender: AMGEN
  Company Number: US-AMGEN-USASP2025156309

PATIENT
  Sex: Female

DRUGS (12)
  1. PROLIA [Suspect]
     Active Substance: DENOSUMAB
     Indication: Osteoporosis postmenopausal
     Dosage: 60 MILLIGRAM PER MILLILITRE, Q6MO (IN THE RIGHT ARM)
     Route: 058
  2. PREDNISONE [Suspect]
     Active Substance: PREDNISONE
     Indication: Dermatitis contact
     Route: 065
  3. TYLENOL [Concomitant]
     Active Substance: ACETAMINOPHEN
     Indication: Arthralgia
     Dosage: 2000 MILLIGRAM, QD (AS NEEDED)
  4. LYRICA [Concomitant]
     Active Substance: PREGABALIN
     Indication: Neuralgia
  5. HERBALS\TURMERIC [Concomitant]
     Active Substance: HERBALS\TURMERIC
  6. CALCIUM [Concomitant]
     Active Substance: CALCIUM
  7. MAGNESIUM [Concomitant]
     Active Substance: MAGNESIUM
  8. MENAQUINONE 6 [Concomitant]
     Active Substance: MENAQUINONE 6
  9. IRON [Concomitant]
     Active Substance: IRON
  10. ALPHA LIPOIC ACID [Concomitant]
     Active Substance: .ALPHA.-LIPOIC ACID
  11. PROBIOTICS NOS [Concomitant]
     Active Substance: PROBIOTICS NOS
  12. Flax [Concomitant]

REACTIONS (2)
  - Dermatitis allergic [Not Recovered/Not Resolved]
  - Poor quality sleep [Not Recovered/Not Resolved]
